FAERS Safety Report 9314152 (Version 1)
Quarter: 2013Q2

REPORT INFORMATION
  Report Type: Spontaneous
  Country: US (occurrence: US)
  Receive Date: 20130529
  Receipt Date: 20130529
  Transmission Date: 20140414
  Serious: No
  Sender: FDA-Public Use
  Company Number: US-009507513-1305USA014622

PATIENT
  Sex: 0
  Weight: 58.5 kg

DRUGS (1)
  1. NEXPLANON [Suspect]
     Dosage: UNK, 1 STANDARD PACKAGE OF PF APPLI OF 1
     Route: 059
     Dates: start: 20130523

REACTIONS (2)
  - Device difficult to use [Recovered/Resolved]
  - No adverse event [Unknown]
